FAERS Safety Report 21618198 (Version 1)
Quarter: 2022Q4

REPORT INFORMATION
  Report Type: Report from Study
  Country: US (occurrence: US)
  Receive Date: 20221119
  Receipt Date: 20221119
  Transmission Date: 20230113
  Serious: No
  Sender: FDA-Public Use
  Company Number: US-ABBVIE-4158801

PATIENT
  Sex: Male

DRUGS (1)
  1. HUMIRA [Suspect]
     Active Substance: ADALIMUMAB
     Indication: Rheumatoid arthritis
     Dosage: STRENGTH - 40 MG
     Route: 058

REACTIONS (7)
  - Arthropathy [Unknown]
  - Dysarthria [Unknown]
  - Depression [Unknown]
  - Balance disorder [Unknown]
  - Disturbance in attention [Unknown]
  - Memory impairment [Unknown]
  - Spondylitis [Unknown]
